FAERS Safety Report 8740894 (Version 2)
Quarter: 2012Q4

REPORT INFORMATION
  Report Type: 
  Country: JP (occurrence: JP)
  Receive Date: 20120823
  Receipt Date: 20121207
  Transmission Date: 20130627
  Serious: Yes (Other)
  Sender: FDA-Public Use
  Company Number: JP-009507513-2012SP026960

PATIENT
  Age: 77 Year
  Sex: Female
  Weight: 49 kg

DRUGS (18)
  1. PEGINTRON [Suspect]
     Indication: HEPATITIS C
     Dosage: 1.0mcg/kg/week
     Route: 058
     Dates: start: 20120424, end: 20120427
  2. REBETOL [Suspect]
     Indication: HEPATITIS C
     Dosage: 400 mg, QD
     Route: 048
     Dates: start: 20120424, end: 20120427
  3. TELAVIC [Suspect]
     Indication: HEPATITIS C
     Dosage: 1500 mg, QD
     Route: 048
     Dates: start: 20120424, end: 20120427
  4. URSO [Concomitant]
     Indication: HEPATITIS C
     Dosage: 300 mg, QD
     Route: 048
  5. URSO [Concomitant]
     Route: 048
  6. PROMAC (POLAPREZINC) [Concomitant]
     Indication: GASTRITIS
     Dosage: FORMULATION:POR
     Route: 048
  7. MAGNESIUM OXIDE [Concomitant]
     Indication: GASTRITIS
     Dosage: FORMULATION: POR
     Route: 048
  8. CONIEL [Concomitant]
     Indication: HYPERTENSION
     Dosage: FORMULATION:POR
     Route: 048
  9. CONIEL [Concomitant]
     Dosage: UNK
  10. DEPAS [Concomitant]
     Indication: DEPRESSION
     Dosage: 0.5MG/DAY AS NEEDED
     Route: 048
  11. NEXIUM [Concomitant]
     Indication: PROPHYLAXIS
     Dosage: 20 mg, QD
     Route: 048
     Dates: start: 20120424
  12. ONEALFA [Concomitant]
     Indication: OSTEOPOROSIS
     Dosage: 0.5 ?g, QD
     Route: 065
  13. PARIET [Concomitant]
     Indication: PROPHYLAXIS
     Dosage: 10 mg, QD
     Route: 048
     Dates: start: 20120429
  14. PORTOLAC [Concomitant]
     Indication: HEPATITIS C
     Dosage: 18 g, qd
     Route: 048
  15. METHYCOBAL [Concomitant]
     Indication: NEURALGIA
     Dosage: 1500 mcg, qd
     Route: 048
  16. AZUNOL (SODIUM GUALENATE) [Concomitant]
     Indication: STOMATITIS
     Dosage: Proper quantity/day
     Route: 049
  17. TALION (BEPOTASTINE BESYLATE) [Concomitant]
     Indication: PROPHYLAXIS
     Dosage: 20 mg, qd
     Route: 048
     Dates: start: 20120424
  18. VOLTAREN [Concomitant]
     Indication: PROPHYLAXIS
     Dosage: 25 mg/ qd, as needed
     Route: 054
     Dates: start: 20120424

REACTIONS (1)
  - Renal impairment [Recovering/Resolving]
